FAERS Safety Report 13876109 (Version 1)
Quarter: 2017Q3

REPORT INFORMATION
  Report Type: Spontaneous
  Country: US (occurrence: None)
  Receive Date: 20170814
  Receipt Date: 20170814
  Transmission Date: 20171127
  Serious: Yes (Death)
  Sender: FDA-Public Use
  Company Number: None

PATIENT
  Age: 60 Year
  Sex: Female

DRUGS (1)
  1. JAKAFI [Suspect]
     Active Substance: RUXOLITINIB
     Indication: PRODUCT USED FOR UNKNOWN INDICATION
     Dosage: FREQUENCY - TAKE 2 TABS IN MORNING AND 1 TAB IN EVENING
     Route: 048
     Dates: start: 20170329, end: 20170720

REACTIONS (1)
  - Death [None]

NARRATIVE: CASE EVENT DATE: 2017
